FAERS Safety Report 25163397 (Version 1)
Quarter: 2025Q2

REPORT INFORMATION
  Report Type: Spontaneous
  Country: TW (occurrence: TW)
  Receive Date: 20250404
  Receipt Date: 20250404
  Transmission Date: 20250716
  Serious: Yes (Other)
  Sender: NOVARTIS
  Company Number: TW-002147023-NVSC2025TW054301

PATIENT
  Sex: Female

DRUGS (1)
  1. LUTATHERA [Suspect]
     Active Substance: LUTETIUM OXODOTREOTIDE LU-177
     Indication: Neuroendocrine tumour
     Route: 065

REACTIONS (5)
  - Neuroendocrine tumour [Unknown]
  - Malignant neoplasm progression [Unknown]
  - Ascites [Recovered/Resolved]
  - Blood chromogranin A increased [Unknown]
  - Venous thrombosis [Unknown]
